FAERS Safety Report 6056662-9 (Version None)
Quarter: 2009Q1

REPORT INFORMATION
  Report Type: 
  Country: None (occurrence: None)
  Receive Date: 20090126
  Receipt Date: 20090126
  Transmission Date: 20090719
  Serious: Yes (Other)
  Sender: FDA-Public Use
  Company Number: None

PATIENT
  Age: 67 Year
  Sex: Female
  Weight: 47.6277 kg

DRUGS (1)
  1. CIPRO [Suspect]
     Indication: URINARY TRACT INFECTION BACTERIAL
     Dosage: 5 DAYS MOUTH
     Route: 048

REACTIONS (5)
  - ABASIA [None]
  - HYPOAESTHESIA [None]
  - MUSCLE SPASMS [None]
  - TENDON RUPTURE [None]
  - WALKING AID USER [None]
